FAERS Safety Report 7297784-4 (Version None)
Quarter: 2011Q1

REPORT INFORMATION
  Report Type: 
  Country: None (occurrence: None)
  Receive Date: 20110214
  Receipt Date: 20110214
  Transmission Date: 20110831
  Serious: Yes (Disabling, Other)
  Sender: FDA-Public Use
  Company Number: None

PATIENT
  Age: 69 Year
  Sex: Female
  Weight: 86.1834 kg

DRUGS (1)
  1. OXYBUTYNIN CHLORIDE [Suspect]
     Indication: URINARY INCONTINENCE
     Dosage: 1 10MG DAILY PO
     Route: 048
     Dates: start: 20090501, end: 20101220

REACTIONS (5)
  - FEELING ABNORMAL [None]
  - APATHY [None]
  - MEMORY IMPAIRMENT [None]
  - BLADDER NEOPLASM [None]
  - HAEMATURIA [None]
